FAERS Safety Report 11400723 (Version 2)
Quarter: 2015Q4

REPORT INFORMATION
  Report Type: Spontaneous
  Country: US (occurrence: US)
  Receive Date: 20150820
  Receipt Date: 20151222
  Transmission Date: 20160304
  Serious: Yes (Hospitalization, Other)
  Sender: FDA-Public Use
  Company Number: US-BRISTOL-MYERS SQUIBB COMPANY-BMS-2015-053646

PATIENT
  Age: 43 Year
  Sex: Female

DRUGS (2)
  1. ARGATROBAN. [Suspect]
     Active Substance: ARGATROBAN
     Indication: THROMBOSIS
     Dosage: UNK
     Route: 042
     Dates: start: 201412
  2. COUMADIN [Suspect]
     Active Substance: WARFARIN SODIUM
     Indication: COAGULOPATHY
     Dosage: UNK
     Route: 065
     Dates: start: 201412

REACTIONS (4)
  - International normalised ratio increased [Recovered/Resolved]
  - Vascular graft [Unknown]
  - Thrombosis [Not Recovered/Not Resolved]
  - Leg amputation [Unknown]

NARRATIVE: CASE EVENT DATE: 20140122
